FAERS Safety Report 11004550 (Version 1)
Quarter: 2015Q2

REPORT INFORMATION
  Report Type: Spontaneous
  Country: US (occurrence: US)
  Receive Date: 20150409
  Receipt Date: 20150409
  Transmission Date: 20150821
  Serious: Yes (Disabling)
  Sender: FDA-Public Use
  Company Number: US-APOTEX-2015AP008026

PATIENT
  Age: 48 Year
  Sex: Male

DRUGS (4)
  1. AMANTADINE [Concomitant]
     Active Substance: AMANTADINE
     Indication: PARKINSON^S DISEASE
     Dosage: 100 MG, BID
     Route: 065
  2. CARBIDOPA AND LEVODOPA [Suspect]
     Active Substance: CARBIDOPA\LEVODOPA
     Indication: PARKINSON^S DISEASE
     Dosage: 1 LEVODOPA 100MG/CARBIDOPA 25MG TABLET EVERY 3 HOURS
     Route: 048
  3. CARBIDOPA AND LEVODOPA [Suspect]
     Active Substance: CARBIDOPA\LEVODOPA
     Dosage: 1.5 LEVODOPA 100MG/CARBIDOPA 25MG TABLETS EVERY 3 HOURS
     Route: 048
  4. RASAGILINE [Concomitant]
     Active Substance: RASAGILINE
     Indication: PARKINSON^S DISEASE
     Route: 065

REACTIONS (3)
  - Sleep disorder [Unknown]
  - Dyskinesia [Recovered/Resolved]
  - On and off phenomenon [Unknown]
